FAERS Safety Report 15133439 (Version 1)
Quarter: 2018Q3

REPORT INFORMATION
  Report Type: Spontaneous
  Country: US (occurrence: US)
  Receive Date: 20180712
  Receipt Date: 20180712
  Transmission Date: 20181010
  Serious: No
  Sender: FDA-Public Use
  Company Number: US-PFIZER INC-2018280597

PATIENT
  Age: 72 Year
  Sex: Male

DRUGS (1)
  1. GABAPENTIN. [Suspect]
     Active Substance: GABAPENTIN
     Indication: OSTEOPOROSIS
     Dosage: 300 MG, 1X/DAY
     Route: 048
     Dates: start: 201712, end: 201801

REACTIONS (1)
  - Drug ineffective for unapproved indication [Unknown]
